FAERS Safety Report 8133074-5 (Version None)
Quarter: 2012Q1

REPORT INFORMATION
  Report Type: 
  Country: None (occurrence: None)
  Receive Date: 20120213
  Receipt Date: 20120207
  Transmission Date: 20120608
  Serious: Yes (Other)
  Sender: FDA-Public Use
  Company Number: PHEH2011US010313

PATIENT
  Sex: Female

DRUGS (11)
  1. ZOFRAN [Concomitant]
  2. SECONAL [Concomitant]
  3. ACETAMINOPHEN [Concomitant]
  4. AREDIA [Suspect]
     Indication: METASTASES TO BONE
     Dosage: 90 MG, UNK
     Route: 042
  5. TAMOXIFEN CITRATE [Concomitant]
  6. OXYCODONE HCL [Concomitant]
  7. DARVOCET-N 50 [Concomitant]
  8. ANCEF [Concomitant]
  9. KEFLEX [Concomitant]
  10. FEMARA [Concomitant]
  11. DULCOLAX [Concomitant]

REACTIONS (6)
  - PELVIC INFLAMMATORY DISEASE [None]
  - TUBO-OVARIAN ABSCESS [None]
  - CONTUSION [None]
  - GAIT DISTURBANCE [None]
  - ABDOMINAL PAIN LOWER [None]
  - OVARIAN CYST [None]
